FAERS Safety Report 23017998 (Version 1)
Quarter: 2023Q4

REPORT INFORMATION
  Report Type: Report from Study
  Country: EG (occurrence: EG)
  Receive Date: 20231003
  Receipt Date: 20231003
  Transmission Date: 20240110
  Serious: Yes (Other)
  Sender: FDA-Public Use
  Company Number: EG-002147023-NVSC2023EG001034

PATIENT
  Age: 54 Year
  Sex: Female

DRUGS (10)
  1. HYRIMOZ [Suspect]
     Active Substance: ADALIMUMAB-ADAZ
     Dosage: 40 MG, Q2W
     Route: 065
  2. HYRIMOZ [Suspect]
     Active Substance: ADALIMUMAB-ADAZ
     Indication: Rheumatoid arthritis
     Dosage: 40 MG, Q2W
     Route: 065
     Dates: start: 20220328
  3. Cal mag [Concomitant]
     Indication: Product used for unknown indication
     Dosage: 1 DOSAGE FORM, QD (1 TABLET AT MORNING)
     Route: 065
     Dates: start: 20220328
  4. CALCIUM [Concomitant]
     Active Substance: CALCIUM
     Indication: Supplementation therapy
     Dosage: 1 DOSAGE FORM
     Route: 065
     Dates: start: 202203
  5. FOLIC ACID [Concomitant]
     Active Substance: FOLIC ACID
     Indication: Supplementation therapy
     Dosage: 1 DOSAGE FORM
     Route: 065
     Dates: start: 202203
  6. Maxical [Concomitant]
     Indication: Supplementation therapy
     Dosage: 1 DOSAGE FORM
     Route: 065
     Dates: start: 202203
  7. Omega 3 plus [Concomitant]
     Indication: Supplementation therapy
     Dosage: 1 DOSAGE FORM (ONE TABLET AT MORNING)
     Route: 065
     Dates: start: 20220328
  8. SULFASALAZINE [Concomitant]
     Active Substance: SULFASALAZINE
     Indication: Rheumatoid arthritis
     Dosage: 1 DOSAGE FORM, BID (ONE TAB IN THE MORNING + ONE  TAB IN THE EVENING)
     Route: 065
     Dates: start: 2018
  9. SELENIUM [Concomitant]
     Active Substance: SELENIUM
     Indication: Supplementation therapy
     Dosage: 1 DOSAGE FORM, QD (1 TABLET AT MORNING), ACE
     Route: 065
     Dates: start: 20220328
  10. PANTOPRAZOLE SODIUM [Concomitant]
     Active Substance: PANTOPRAZOLE SODIUM
     Indication: Gastrointestinal disorder prophylaxis
     Dosage: 1 DOSAGE FORM
     Route: 065
     Dates: start: 202206

REACTIONS (27)
  - Alopecia [Recovering/Resolving]
  - Hair injury [Recovering/Resolving]
  - Systemic lupus erythematosus [Not Recovered/Not Resolved]
  - Blood cholesterol abnormal [Not Recovered/Not Resolved]
  - Blood cholesterol increased [Not Recovered/Not Resolved]
  - Vision blurred [Recovering/Resolving]
  - Vitamin D deficiency [Recovered/Resolved]
  - Hypertension [Not Recovered/Not Resolved]
  - Headache [Recovering/Resolving]
  - Muscle spasms [Not Recovered/Not Resolved]
  - Red blood cell sedimentation rate increased [Not Recovered/Not Resolved]
  - Arthralgia [Not Recovered/Not Resolved]
  - Inflammation [Not Recovered/Not Resolved]
  - Pain in extremity [Not Recovered/Not Resolved]
  - Fatigue [Not Recovered/Not Resolved]
  - Rheumatoid factor positive [Not Recovered/Not Resolved]
  - Pyrexia [Recovered/Resolved]
  - C-reactive protein increased [Unknown]
  - Hypoaesthesia [Not Recovered/Not Resolved]
  - Pyrexia [Recovered/Resolved]
  - Nasopharyngitis [Recovered/Resolved]
  - Visual impairment [Not Recovered/Not Resolved]
  - Cough [Recovering/Resolving]
  - Nasopharyngitis [Recovering/Resolving]
  - Drug ineffective [Not Recovered/Not Resolved]
  - Influenza [Unknown]
  - Product dose omission issue [Not Recovered/Not Resolved]

NARRATIVE: CASE EVENT DATE: 20220328
